FAERS Safety Report 5002617-2 (Version None)
Quarter: 2006Q2

REPORT INFORMATION
  Report Type: 
  Country: None (occurrence: None)
  Receive Date: 20060510
  Receipt Date: 20060426
  Transmission Date: 20061013
  Serious: Yes (Hospitalization)
  Sender: FDA-Public Use
  Company Number: SUS1-2006-00482

PATIENT
  Age: 37 Year
  Sex: Male

DRUGS (3)
  1. PENTASA [Suspect]
     Indication: COLITIS ULCERATIVE
     Dosage: 1500 MG, DAILY, ORAL
     Route: 048
     Dates: start: 20040821, end: 20040907
  2. BETAMETHASONE [Suspect]
     Dosage: SEE IMAGE
     Route: 054
     Dates: start: 20040904, end: 20040907
  3. BETAMETHASONE [Suspect]
     Dosage: SEE IMAGE
     Route: 054
     Dates: start: 20060110, end: 20060222

REACTIONS (2)
  - ENTEROCOLITIS [None]
  - PANCREATITIS [None]
